FAERS Safety Report 8308244-3 (Version None)
Quarter: 2012Q2

REPORT INFORMATION
  Report Type: 
  Country: None (occurrence: None)
  Receive Date: 20120424
  Receipt Date: 20120410
  Transmission Date: 20120825
  Serious: Yes (Hospitalization)
  Sender: FDA-Public Use
  Company Number: PL-ROCHE-1050037

PATIENT
  Sex: Male
  Weight: 63.9 kg

DRUGS (5)
  1. AVASTIN [Suspect]
     Dosage: ROUTE, DOSE, FORM AND FREQUENCY: NOT REPORTED
  2. ROFERON-A [Suspect]
     Indication: RENAL CANCER METASTATIC
     Dosage: DOSE- 9 M
     Route: 058
     Dates: start: 20090615, end: 20120224
  3. LOSARTAN POTASSIUM AND HYDROCHLOROTHIAZIDE [Concomitant]
     Indication: HYPERTENSION
     Dosage: DRUG NAME: LOSARTAN POTASSIUM W/HYDROCHLOROTHIAZIDE
     Dates: start: 20110105
  4. AVASTIN [Suspect]
     Indication: RENAL CANCER METASTATIC
     Dosage: DOSE- 740 MG
     Route: 042
     Dates: start: 20090615, end: 20120220
  5. ROFERON-A [Suspect]
     Dosage: ROUTE, DOSE, FORM AND FREQUENCY: NOT REPORTED

REACTIONS (1)
  - BRONCHITIS [None]
